FAERS Safety Report 16789583 (Version 1)
Quarter: 2019Q3

REPORT INFORMATION
  Report Type: Spontaneous
  Country: US (occurrence: US)
  Receive Date: 20190910
  Receipt Date: 20190910
  Transmission Date: 20191005
  Serious: Yes (Other)
  Sender: FDA-Public Use
  Company Number: US-UNITED THERAPEUTICS-UNT-2019-014408

PATIENT
  Sex: Male
  Weight: 82.54 kg

DRUGS (1)
  1. REMODULIN [Suspect]
     Active Substance: TREPROSTINIL
     Indication: PULMONARY ARTERIAL HYPERTENSION
     Dosage: 0.032 ?G/KG, CONTINUING
     Route: 058
     Dates: start: 20180103, end: 2019

REACTIONS (5)
  - Pericardial effusion [Unknown]
  - Infusion site swelling [Unknown]
  - Dyspnoea [Unknown]
  - Infusion site pain [Unknown]
  - Infusion site scar [Unknown]
